FAERS Safety Report 25940388 (Version 1)
Quarter: 2025Q4

REPORT INFORMATION
  Report Type: Spontaneous
  Country: US (occurrence: None)
  Receive Date: 20251018
  Receipt Date: 20251018
  Transmission Date: 20260117
  Serious: No
  Sender: FDA-CTU
  Company Number: None

PATIENT
  Sex: Female

DRUGS (2)
  1. HUMIRA [Suspect]
     Active Substance: ADALIMUMAB
     Indication: Rheumatoid arthritis
     Dosage: 40 MG EVRY OTHER WEEK SUBCUTANEOUS
     Route: 058
     Dates: start: 20240304
  2. AMOXICILLIN [Suspect]
     Active Substance: AMOXICILLIN

REACTIONS (3)
  - Drug hypersensitivity [None]
  - Urinary tract infection [None]
  - Therapeutic product effect incomplete [None]
